FAERS Safety Report 10090972 (Version 1)
Quarter: 2014Q2

REPORT INFORMATION
  Report Type: Spontaneous
  Country: ZA (occurrence: ZA)
  Receive Date: 20140421
  Receipt Date: 20140421
  Transmission Date: 20141212
  Serious: Yes (Disabling, Other)
  Sender: FDA-Public Use
  Company Number: ZA-WATSON-2014-07587

PATIENT
  Age: 56 Year
  Sex: Female

DRUGS (3)
  1. TRIAMCINOLONE ACETONIDE (AMALLC) [Suspect]
     Indication: MACULAR OEDEMA
     Dosage: 4 MG, SINGLE
     Route: 031
     Dates: start: 201102
  2. AZATHIOPRINE (UNKNOWN) [Suspect]
     Indication: UVEITIS
     Dosage: 100 MG, DAILY (2MG/KG)
     Route: 065
  3. PREDNISOLONE (UNKNOWN) [Suspect]
     Indication: UVEITIS
     Dosage: 10 MG, UNKNOWN
     Route: 048

REACTIONS (1)
  - Cytomegalovirus chorioretinitis [Recovering/Resolving]
